FAERS Safety Report 6141539-0 (Version None)
Quarter: 2009Q2

REPORT INFORMATION
  Report Type: 
  Country: None (occurrence: None)
  Receive Date: 20090401
  Receipt Date: 20090401
  Transmission Date: 20091009
  Serious: Yes (Other)
  Sender: FDA-Public Use
  Company Number: None

PATIENT
  Age: 38 Year
  Sex: Female
  Weight: 68.0396 kg

DRUGS (1)
  1. LYRICA [Suspect]
     Indication: NEURALGIA
     Dosage: 500 MG 3X DAY PO
     Route: 048
     Dates: start: 20081010, end: 20081115

REACTIONS (7)
  - BURNING SENSATION [None]
  - OFF LABEL USE [None]
  - UTERINE DISORDER [None]
  - UTERINE HAEMORRHAGE [None]
  - UTERINE PAIN [None]
  - UTERINE SPASM [None]
  - VAGINAL HAEMORRHAGE [None]
